FAERS Safety Report 8131808-7 (Version None)
Quarter: 2012Q1

REPORT INFORMATION
  Report Type: 
  Country: None (occurrence: None)
  Receive Date: 20120213
  Receipt Date: 20120201
  Transmission Date: 20120608
  Serious: Yes (Death, Hospitalization, Other)
  Sender: FDA-Public Use
  Company Number: US-MYLANLABS-2012S1002945

PATIENT
  Age: 76 Year
  Sex: Female
  Weight: 126.55 kg

DRUGS (22)
  1. VALSARTAN [Concomitant]
  2. POTASSIUM [Concomitant]
  3. ALLOPURINOL [Concomitant]
  4. FUROSEMIDE [Concomitant]
  5. SPIRONOLACTONE [Concomitant]
  6. ASPIRIN [Concomitant]
  7. COREG [Concomitant]
  8. LOVENOX [Concomitant]
  9. CANDESARTAN CILEXETIL [Concomitant]
  10. ZAROXOLYN [Concomitant]
  11. NAPROXEN (ALEVE) [Concomitant]
  12. COENZYME Q10 [Concomitant]
  13. MICONAZOLE [Concomitant]
  14. ACETAMINOPHEN [Concomitant]
  15. DIGOXIN [Suspect]
     Route: 048
     Dates: start: 20040423, end: 20090210
  16. VICODIN [Concomitant]
  17. DIOVAN [Concomitant]
  18. VITAMIN B-12 [Concomitant]
  19. NEURONTIN [Concomitant]
  20. MULTI-VITAMIN [Concomitant]
  21. INDOMETHACIN [Concomitant]
  22. IMDUR [Concomitant]

REACTIONS (38)
  - CARDIAC FAILURE CONGESTIVE [None]
  - CARDIOMEGALY [None]
  - VENOUS INSUFFICIENCY [None]
  - CORONARY ARTERY DISEASE [None]
  - CARDIOACTIVE DRUG LEVEL INCREASED [None]
  - HYPERKALAEMIA [None]
  - BREATH SOUNDS ABNORMAL [None]
  - CONDITION AGGRAVATED [None]
  - HEART RATE IRREGULAR [None]
  - HOSPICE CARE [None]
  - PERIPHERAL VASCULAR DISORDER [None]
  - RIGHT VENTRICULAR FAILURE [None]
  - TACHYCARDIA [None]
  - ILL-DEFINED DISORDER [None]
  - OEDEMA PERIPHERAL [None]
  - GENERAL PHYSICAL HEALTH DETERIORATION [None]
  - OXYGEN SUPPLEMENTATION [None]
  - WHEELCHAIR USER [None]
  - ERYTHEMA [None]
  - ATRIAL FIBRILLATION [None]
  - ATELECTASIS [None]
  - DEATH [None]
  - TOXICITY TO VARIOUS AGENTS [None]
  - WHEEZING [None]
  - DISEASE PROGRESSION [None]
  - DYSPHAGIA [None]
  - HYPERLIPIDAEMIA [None]
  - HYPONATRAEMIA [None]
  - TERMINAL STATE [None]
  - RALES [None]
  - ASTHENIA [None]
  - DYSPNOEA [None]
  - CHRONIC OBSTRUCTIVE PULMONARY DISEASE [None]
  - OBESITY [None]
  - HYPOPHAGIA [None]
  - RIGHT VENTRICULAR DYSFUNCTION [None]
  - ORTHOPNOEA [None]
  - INJURY [None]
